FAERS Safety Report 8081166-1 (Version None)
Quarter: 2012Q1

REPORT INFORMATION
  Report Type: 
  Country: None (occurrence: None)
  Receive Date: 20120130
  Receipt Date: 20120125
  Transmission Date: 20120608
  Serious: Yes (Death, Hospitalization)
  Sender: FDA-Public Use
  Company Number: US-GLAXOSMITHKLINE-B0719532A

PATIENT
  Age: 74 Year
  Sex: Male
  Weight: 131.4 kg

DRUGS (7)
  1. AVODART [Concomitant]
  2. GLYBURIDE [Concomitant]
  3. AVANDAMET [Suspect]
     Indication: DIABETES MELLITUS
     Dosage: 1TAB TWICE PER DAY
     Route: 048
     Dates: start: 20090701, end: 20100301
  4. LEXAPRO [Concomitant]
  5. METOPROLOL TARTRATE [Concomitant]
  6. TRIAMTERENE AND HYDROCHLOROTHIAZIDE [Concomitant]
  7. LISINOPRIL [Concomitant]

REACTIONS (2)
  - CARDIO-RESPIRATORY ARREST [None]
  - MYOCARDIAL INFARCTION [None]
